FAERS Safety Report 16822932 (Version 1)
Quarter: 2019Q3

REPORT INFORMATION
  Report Type: Spontaneous
  Country: US (occurrence: US)
  Receive Date: 20190918
  Receipt Date: 20190918
  Transmission Date: 20191005
  Serious: Yes (Hospitalization, Other)
  Sender: FDA-Public Use
  Company Number: US-APOTEX-2019AP022115

PATIENT
  Age: 64 Year
  Sex: Female

DRUGS (3)
  1. ZOLPIDEM [Suspect]
     Active Substance: ZOLPIDEM TARTRATE
     Dosage: 10 MG, Q.H.S. (AS NEEDED)
     Route: 065
  2. ZOLPIDEM [Suspect]
     Active Substance: ZOLPIDEM TARTRATE
     Indication: POOR QUALITY SLEEP
     Dosage: 5 MG, Q.H.S.
     Route: 065
  3. HYDROXYZINE [Suspect]
     Active Substance: HYDROXYZINE HYDROCHLORIDE
     Indication: PRURITUS
     Dosage: 25 MG, Q.H.S. (AS NEEDED)
     Route: 048

REACTIONS (9)
  - Metabolic acidosis [Recovered/Resolved]
  - Agitation [Recovered/Resolved]
  - Extra dose administered [Unknown]
  - Pupils unequal [Recovered/Resolved]
  - Somnolence [Recovered/Resolved]
  - Respiratory acidosis [Recovered/Resolved]
  - Unresponsive to stimuli [Recovered/Resolved]
  - Product prescribing error [Unknown]
  - Neurological symptom [Recovered/Resolved]
